FAERS Safety Report 7623384-X (Version None)
Quarter: 2011Q3

REPORT INFORMATION
  Report Type: 
  Country: None (occurrence: None)
  Receive Date: 20110720
  Receipt Date: 20110712
  Transmission Date: 20111222
  Serious: Yes (Disabling)
  Sender: FDA-Public Use
  Company Number: GB-JNJFOC-20110704952

PATIENT
  Age: 44 Year
  Sex: Female

DRUGS (7)
  1. ZOPICLONE [Concomitant]
     Indication: INSOMNIA
     Route: 065
     Dates: start: 20100901, end: 20101101
  2. VITAMIN B [Concomitant]
     Indication: PRODUCT USED FOR UNKNOWN INDICATION
     Route: 065
  3. MINOXIDIL [Suspect]
     Route: 061
  4. CHONDROITIN [Concomitant]
     Indication: PRODUCT USED FOR UNKNOWN INDICATION
     Route: 066
  5. GLUCOSAMINE [Concomitant]
     Indication: PRODUCT USED FOR UNKNOWN INDICATION
     Route: 065
  6. MINOXIDIL [Suspect]
     Indication: ALOPECIA
     Route: 061
     Dates: start: 20080601, end: 20101101
  7. CALCIUM CARBONATE [Concomitant]
     Indication: PRODUCT USED FOR UNKNOWN INDICATION
     Route: 065

REACTIONS (10)
  - NAUSEA [None]
  - DEPRESSED MOOD [None]
  - OEDEMA PERIPHERAL [None]
  - ANXIETY [None]
  - DEPRESSION [None]
  - ARTHROPATHY [None]
  - ACROCHORDON [None]
  - BONE PAIN [None]
  - INSOMNIA [None]
  - TACHYCARDIA [None]
